FAERS Safety Report 7620518-8 (Version None)
Quarter: 2011Q3

REPORT INFORMATION
  Report Type: 
  Country: None (occurrence: None)
  Receive Date: 20110719
  Receipt Date: 20110707
  Transmission Date: 20111222
  Serious: Yes (Other)
  Sender: FDA-Public Use
  Company Number: US-ROCHE-694392

PATIENT
  Sex: Male
  Weight: 61.2 kg

DRUGS (1)
  1. ACCUTANE [Suspect]
     Indication: ACNE
     Route: 048
     Dates: start: 20001218, end: 20010507

REACTIONS (12)
  - CROHN'S DISEASE [None]
  - DEPRESSION [None]
  - ANAL POLYP [None]
  - COLITIS ULCERATIVE [None]
  - INFLAMMATORY BOWEL DISEASE [None]
  - IRRITABLE BOWEL SYNDROME [None]
  - HAEMORRHOIDS [None]
  - CHAPPED LIPS [None]
  - NIGHT BLINDNESS [None]
  - ANAL FISSURE [None]
  - DRY SKIN [None]
  - EPISTAXIS [None]
